FAERS Safety Report 23885647 (Version 2)
Quarter: 2024Q2

REPORT INFORMATION
  Report Type: Spontaneous
  Country: GB (occurrence: GB)
  Receive Date: 20240522
  Receipt Date: 20240627
  Transmission Date: 20240716
  Serious: Yes (Other)
  Sender: FDA-Public Use
  Company Number: None

PATIENT
  Age: 37 Year
  Sex: Female
  Weight: 89 kg

DRUGS (20)
  1. METHOTREXATE [Suspect]
     Active Substance: METHOTREXATE
     Indication: Lip swelling
     Dosage: UNK
     Route: 048
     Dates: start: 20231123, end: 20240513
  2. METHOTREXATE [Suspect]
     Active Substance: METHOTREXATE
     Dosage: UNK
     Route: 048
     Dates: start: 20240513
  3. AMOXICILLIN [Concomitant]
     Active Substance: AMOXICILLIN
     Route: 065
     Dates: start: 20240501, end: 20240506
  4. AMOXICILLIN [Concomitant]
     Active Substance: AMOXICILLIN
     Indication: Ill-defined disorder
     Dosage: TAKE ONE CAPSULE THREE TIMES A DAY
     Route: 065
     Dates: start: 20240501, end: 20240506
  5. CODEINE PHOSPHATE [Concomitant]
     Active Substance: CODEINE PHOSPHATE
     Indication: Ill-defined disorder
     Dosage: TAKE ONE OR TWO TABLETS FOUR TIMES A DAY WHEN R...
     Route: 065
     Dates: start: 20240318, end: 20240401
  6. EXEMESTANE [Concomitant]
     Active Substance: EXEMESTANE
     Dosage: 1 DF, QD
     Route: 065
     Dates: start: 20220617
  7. EXEMESTANE [Concomitant]
     Active Substance: EXEMESTANE
     Indication: Ill-defined disorder
     Dosage: TAKE ONE ONCE DAILY
     Route: 065
     Dates: start: 20220617
  8. FEXOFENADINE [Concomitant]
     Active Substance: FEXOFENADINE HYDROCHLORIDE
     Route: 065
     Dates: start: 20240409
  9. FEXOFENADINE [Concomitant]
     Active Substance: FEXOFENADINE HYDROCHLORIDE
     Indication: Ill-defined disorder
     Dosage: TAKE ONE TABLET ONCE A DAY
     Route: 065
     Dates: start: 20240409
  10. FLUOXETINE [Concomitant]
     Active Substance: FLUOXETINE HYDROCHLORIDE
     Dosage: 1 DF, QD
     Route: 065
     Dates: start: 20240425
  11. FLUOXETINE [Concomitant]
     Active Substance: FLUOXETINE HYDROCHLORIDE
     Indication: Ill-defined disorder
     Dosage: 1 DF
     Route: 065
     Dates: start: 20240425
  12. FOLIC ACID [Concomitant]
     Active Substance: FOLIC ACID
     Dosage: DOSE TO BE TAKE ON... NUMBER OF SEPARATE DOSES:
     Route: 065
     Dates: start: 20231123
  13. FOLIC ACID [Concomitant]
     Active Substance: FOLIC ACID
     Indication: Ill-defined disorder
     Dosage: TAKE ONE TABLET ONCE A WEEK, DOSE TO BE TAKE ON...
     Route: 065
     Dates: start: 20231123
  14. OMEPRAZOLE [Concomitant]
     Active Substance: DONEPEZIL HYDROCHLORIDE\OMEPRAZOLE\OMEPRAZOLE MAGNESIUM
     Route: 065
     Dates: start: 20240516
  15. OMEPRAZOLE [Concomitant]
     Active Substance: DONEPEZIL HYDROCHLORIDE\OMEPRAZOLE\OMEPRAZOLE MAGNESIUM
     Indication: Ill-defined disorder
     Dosage: TAKE ONE CAPSULE ONCE A DAY
     Route: 065
     Dates: start: 20240516
  16. PREDNISOLONE [Concomitant]
     Active Substance: PREDNISOLONE
     Indication: Ill-defined disorder
     Dosage: TAKE REDUCING COURSE. TAKE THREE TABLETS AS A S... NUMBER OF SEPARATE DOSES:
     Route: 065
     Dates: start: 20240513
  17. PROPRANOLOL [Concomitant]
     Active Substance: PROPRANOLOL HYDROCHLORIDE
     Route: 065
     Dates: start: 20240318, end: 20240415
  18. PROPRANOLOL [Concomitant]
     Active Substance: PROPRANOLOL HYDROCHLORIDE
     Indication: Ill-defined disorder
     Dosage: TAKE ONE TABLET UPT TO THREE TIMES A DAY AS REQ...
     Route: 065
     Dates: start: 20240318, end: 20240415
  19. GOSERELIN [Concomitant]
     Active Substance: GOSERELIN
     Dosage: EVERY 28 DAYS
     Route: 059
     Dates: start: 20221117
  20. GOSERELIN [Concomitant]
     Active Substance: GOSERELIN
     Indication: Ill-defined disorder
     Dosage: SC INJECTION EVERY 28 DAYS
     Route: 058
     Dates: start: 20221117

REACTIONS (3)
  - Lip swelling [Recovered/Resolved]
  - Sensation of foreign body [Unknown]
  - Dyspnoea [Unknown]

NARRATIVE: CASE EVENT DATE: 20240517
